FAERS Safety Report 8623395-1 (Version None)
Quarter: 2012Q3

REPORT INFORMATION
  Report Type: 
  Country: None (occurrence: None)
  Receive Date: 20120827
  Receipt Date: 20120817
  Transmission Date: 20120928
  Serious: Yes (Other)
  Sender: FDA-Public Use
  Company Number: US-CELGENEUS-163-21880-12063718

PATIENT
  Sex: Male

DRUGS (4)
  1. CHLORTHALIDONE [Concomitant]
     Route: 065
  2. REVLIMID [Suspect]
     Indication: MULTIPLE MYELOMA
     Dosage: 25 MILLIGRAM
     Route: 048
     Dates: start: 20120525, end: 20120612
  3. METFORMIN HCL [Concomitant]
     Route: 065
  4. RAMIPRIL [Concomitant]
     Indication: HYPERTENSION
     Dosage: 10 MILLIGRAM
     Route: 065

REACTIONS (1)
  - DRUG INTOLERANCE [None]
